FAERS Safety Report 15434144 (Version 1)
Quarter: 2018Q3

REPORT INFORMATION
  Report Type: Spontaneous
  Country: US (occurrence: US)
  Receive Date: 20180921
  Receipt Date: 20180921
  Transmission Date: 20181010
  Serious: No
  Sender: FDA-Public Use
  Company Number: None

PATIENT
  Sex: Male

DRUGS (1)
  1. TALTZ [Suspect]
     Active Substance: IXEKIZUMAB
     Indication: PSORIASIS
     Route: 058
     Dates: start: 201804

REACTIONS (8)
  - Chronic obstructive pulmonary disease [None]
  - Bronchitis [None]
  - Cardiac failure congestive [None]
  - Tachycardia [None]
  - Pain in extremity [None]
  - Emphysema [None]
  - Psoriasis [None]
  - Cough [None]
